APPROVED DRUG PRODUCT: CARDIZEM
Active Ingredient: DILTIAZEM HYDROCHLORIDE
Strength: 90MG
Dosage Form/Route: TABLET;ORAL
Application: N018602 | Product #003 | TE Code: AB
Applicant: BAUSCH HEALTH US LLC
Approved: Dec 8, 1986 | RLD: Yes | RS: No | Type: RX